FAERS Safety Report 6419116-3 (Version None)
Quarter: 2009Q4

REPORT INFORMATION
  Report Type: 
  Country: None (occurrence: None)
  Receive Date: 20091029
  Receipt Date: 20091020
  Transmission Date: 20100525
  Serious: Yes (Death)
  Sender: FDA-Public Use
  Company Number: US-ROCHE-653929

PATIENT
  Sex: Female
  Weight: 59.6 kg

DRUGS (3)
  1. CAPECITABINE [Suspect]
     Indication: BREAST CANCER
     Route: 048
     Dates: start: 20090706, end: 20090826
  2. WARFARIN SODIUM [Concomitant]
     Indication: PULMONARY EMBOLISM
     Route: 048
     Dates: start: 20030423
  3. DILTIAZEM [Concomitant]
     Route: 048
     Dates: start: 20030423

REACTIONS (1)
  - MALIGNANT NEOPLASM PROGRESSION [None]
